FAERS Safety Report 8723287 (Version 3)
Quarter: 2013Q1

REPORT INFORMATION
  Report Type: Spontaneous
  Country: US (occurrence: US)
  Receive Date: 20120814
  Receipt Date: 20130104
  Transmission Date: 20140127
  Serious: Yes (Death, Hospitalization, Other)
  Sender: FDA-Public Use
  Company Number: US-ROCHE-1099711

PATIENT
  Sex: Male

DRUGS (19)
  1. RITUXAN [Suspect]
     Indication: LYMPHOMA
     Route: 065
  2. CELLCEPT [Suspect]
     Indication: BONE MARROW TRANSPLANT
     Route: 065
  3. PROGRAF [Suspect]
     Indication: BONE MARROW TRANSPLANT
     Route: 065
  4. ZYRTEC [Concomitant]
  5. CARDURA [Concomitant]
     Route: 065
  6. PREDNISONE [Concomitant]
     Route: 065
  7. PLENDIL [Concomitant]
     Route: 065
  8. PROTONIX [Concomitant]
     Route: 065
  9. INSULIN [Concomitant]
  10. MAGNESIUM OXIDE [Concomitant]
  11. POTASSIUM CHLORIDE [Concomitant]
  12. ZITHROMAX [Concomitant]
  13. BUDESONIDE [Concomitant]
     Route: 065
  14. ACTIGALL [Concomitant]
     Route: 065
  15. MUCOMYST [Concomitant]
  16. ADVAIR [Concomitant]
  17. ASTEPRO [Concomitant]
  18. VICODIN [Concomitant]
  19. VALGANCICLOVIR [Concomitant]

REACTIONS (7)
  - Death [Fatal]
  - Progressive multifocal leukoencephalopathy [Unknown]
  - Aphasia [Unknown]
  - Hemiparesis [Unknown]
  - Neoplasm [Unknown]
  - Graft versus host disease [Unknown]
  - Opportunistic infection [Unknown]
